FAERS Safety Report 23765820 (Version 3)
Quarter: 2025Q4

REPORT INFORMATION
  Report Type: Spontaneous
  Country: US (occurrence: US)
  Receive Date: 20240421
  Receipt Date: 20251124
  Transmission Date: 20260117
  Serious: No
  Sender: SANOFI AVENTIS
  Company Number: US-SA-SAC20240416000359

PATIENT
  Age: 66 Year
  Sex: Female

DRUGS (2)
  1. DUPIXENT [Suspect]
     Active Substance: DUPILUMAB
     Indication: Dermatitis atopic
     Dosage: 300 MG QOW
     Route: 058
  2. DUPIXENT [Suspect]
     Active Substance: DUPILUMAB
     Indication: Asthma

REACTIONS (11)
  - Upper-airway cough syndrome [Unknown]
  - Injection site vesicles [Unknown]
  - Condition aggravated [Unknown]
  - Bronchial hyperreactivity [Unknown]
  - Cough [Unknown]
  - Wheezing [Unknown]
  - Nasopharyngitis [Unknown]
  - Injection site pain [Unknown]
  - Injection site erythema [Unknown]
  - Condition aggravated [Unknown]
  - Product use in unapproved indication [Unknown]
